FAERS Safety Report 22348119 (Version 1)
Quarter: 2023Q2

REPORT INFORMATION
  Report Type: Report from Study
  Country: KR (occurrence: KR)
  Receive Date: 20230522
  Receipt Date: 20230522
  Transmission Date: 20230721
  Serious: Yes (Other)
  Sender: FDA-Public Use
  Company Number: KR-002147023-NVSC2022KR200246

PATIENT
  Age: 84 Year
  Sex: Male

DRUGS (7)
  1. BEOVU [Suspect]
     Active Substance: BROLUCIZUMAB-DBLL
     Indication: Neovascular age-related macular degeneration
     Dosage: 6 MG, RIGHT EYD (OD)
     Route: 031
     Dates: start: 20220418, end: 20220418
  2. VIGAMOX [Concomitant]
     Active Substance: MOXIFLOXACIN HYDROCHLORIDE
     Indication: Evidence based treatment
     Dosage: 1 DRP, (24) (EYE DROP)
     Route: 047
     Dates: start: 20220418, end: 202204
  3. OCUVITE PRESERVISION [Concomitant]
     Indication: Asthenopia
     Dosage: UNK
     Route: 065
     Dates: start: 20190423, end: 20220622
  4. HYALURONATE SODIUM [Concomitant]
     Active Substance: HYALURONATE SODIUM
     Indication: Dry eye
     Dosage: UNK
     Route: 065
     Dates: start: 20210322
  5. LIPITOL [Concomitant]
     Indication: Cerebral infarction
     Dosage: UNK
     Route: 065
     Dates: start: 20220615
  6. DIOVAN [Concomitant]
     Active Substance: VALSARTAN
     Indication: Hypertension
     Dosage: UNK
     Route: 065
     Dates: start: 20220615
  7. CHOLINE ALFOSCERATE [Concomitant]
     Active Substance: CHOLINE ALFOSCERATE
     Indication: Cerebral infarction
     Dosage: UNK
     Route: 065
     Dates: start: 20220615

REACTIONS (4)
  - Retinal oedema [Recovered/Resolved]
  - Visual acuity reduced [Not Recovered/Not Resolved]
  - Eye inflammation [Recovered/Resolved]
  - Anterior chamber cell [Recovered/Resolved]

NARRATIVE: CASE EVENT DATE: 20220712
